FAERS Safety Report 21550977 (Version 2)
Quarter: 2022Q4

REPORT INFORMATION
  Report Type: Spontaneous
  Country: BR (occurrence: BR)
  Receive Date: 20221103
  Receipt Date: 20221106
  Transmission Date: 20230113
  Serious: Yes (Hospitalization, Other)
  Sender: FDA-Public Use
  Company Number: BR-009507513-2211BRA000286

PATIENT
  Age: 37 Year
  Sex: Female

DRUGS (5)
  1. KEYTRUDA [Suspect]
     Active Substance: PEMBROLIZUMAB
     Indication: Triple negative breast cancer
     Dosage: 200MG, EVERY 21 DAYS
     Route: 042
     Dates: start: 20220211
  2. PACLITAXEL [Suspect]
     Active Substance: PACLITAXEL
     Indication: Triple negative breast cancer
     Dosage: 80 MG/M?
     Dates: start: 20220211
  3. CARBOPLATIN [Suspect]
     Active Substance: CARBOPLATIN
     Indication: Triple negative breast cancer
     Dosage: AUC 1,5, FOR 12 WEEKS, FOLLOWED BY 4 AB EVERY 21 DAYS WITH PEMBROLIZUMAB EVERY 21 DAYS
  4. CARBOPLATIN [Suspect]
     Active Substance: CARBOPLATIN
     Dosage: AUC 1,5, FOR 12 WEEKS, FOLLOWED BY 4 AB EVERY 21 DAYS WITH PEMBROLIZUMAB EVERY 21 DAYS
  5. AMOXICILLIN\CLAVULANATE POTASSIUM [Suspect]
     Active Substance: AMOXICILLIN\CLAVULANATE POTASSIUM

REACTIONS (13)
  - Neutropenia [Unknown]
  - COVID-19 [Unknown]
  - Tonsillitis [Unknown]
  - Rash maculo-papular [Unknown]
  - Face oedema [Unknown]
  - Radiotherapy [Unknown]
  - Pyrexia [Not Recovered/Not Resolved]
  - Chills [Unknown]
  - Hypotension [Unknown]
  - Breast mass [Unknown]
  - Surgery [Unknown]
  - Therapy non-responder [Unknown]
  - Product use in unapproved indication [Unknown]

NARRATIVE: CASE EVENT DATE: 20210131
